FAERS Safety Report 18010245 (Version 2)
Quarter: 2020Q3

REPORT INFORMATION
  Report Type: Spontaneous
  Country: IT (occurrence: IT)
  Receive Date: 20200710
  Receipt Date: 20200805
  Transmission Date: 20201103
  Serious: Yes (Death, Hospitalization, Other)
  Sender: FDA-Public Use
  Company Number: IT-MYLANLABS-2020M1061928

PATIENT
  Age: 52 Year
  Sex: Male

DRUGS (2)
  1. GILTERITINIB [Interacting]
     Active Substance: GILTERITINIB
     Indication: PRODUCT USED FOR UNKNOWN INDICATION
     Dosage: UNK (UNK UNK, UNKNOWN FREQ.)
     Route: 065
  2. ITRACONAZOLE. [Suspect]
     Active Substance: ITRACONAZOLE
     Indication: PRODUCT USED FOR UNKNOWN INDICATION
     Dosage: UNK (UNK UNK, UNKNOWN FREQ.)
     Route: 065

REACTIONS (5)
  - Drug interaction [Unknown]
  - Cardiac disorder [Fatal]
  - Differentiation syndrome [Unknown]
  - Electrocardiogram QT prolonged [Unknown]
  - Pulmonary oedema [Unknown]
